FAERS Safety Report 4336597-X (Version None)
Quarter: 2004Q2

REPORT INFORMATION
  Report Type: 
  Country: None (occurrence: None)
  Receive Date: 20040409
  Receipt Date: 20040409
  Transmission Date: 20050107
  Serious: Yes (Death)
  Sender: FDA-Public Use
  Company Number: None

PATIENT
  Age: 87 Year
  Sex: Female
  Weight: 50.8 kg

DRUGS (2)
  1. LOVENOX [Suspect]
     Indication: DEEP VENOUS THROMBOSIS PROPHYLAXIS
     Dosage: 40 MG DAILY SUBCUTANEOUS
     Route: 058
     Dates: start: 20040216, end: 20040219
  2. PLAVIX [Suspect]
     Dosage: 75 MG DAILY ORAL
     Route: 048
     Dates: start: 20040216, end: 20040219

REACTIONS (12)
  - AORTIC ANEURYSM RUPTURE [None]
  - CARDIAC VENTRICULAR DISORDER [None]
  - CARDIO-RESPIRATORY ARREST [None]
  - CHRONIC OBSTRUCTIVE AIRWAYS DISEASE [None]
  - COMA [None]
  - GASTROINTESTINAL HAEMORRHAGE [None]
  - HAEMORRHOIDS [None]
  - HYPOPERFUSION [None]
  - HYPOTENSION [None]
  - LEUKOCYTOSIS [None]
  - METABOLIC ACIDOSIS [None]
  - SHOCK HAEMORRHAGIC [None]
